FAERS Safety Report 6790198-2 (Version None)
Quarter: 2010Q2

REPORT INFORMATION
  Report Type: 
  Country: None (occurrence: None)
  Receive Date: 20100520
  Receipt Date: 20090728
  Transmission Date: 20101027
  Serious: Yes (Disabling, Other)
  Sender: FDA-Public Use
  Company Number: 2009188135

PATIENT
  Sex: Female
  Weight: 64.8 kg

DRUGS (10)
  1. MEDROXYPROGESTERONE ACETATE [Suspect]
     Indication: HORMONE REPLACEMENT THERAPY
     Dosage: 2.5 MG, ORAL
     Route: 048
     Dates: start: 20030210, end: 20070402
  2. MEDROXYPROGESTERONE [Suspect]
     Indication: HORMONE REPLACEMENT THERAPY
     Dosage: 2.5 MG
     Dates: start: 20010518, end: 20030210
  3. ESTRATEST H.S. [Suspect]
     Indication: HORMONE REPLACEMENT THERAPY
     Dosage: 0.625/1.25MG
     Dates: start: 19920713, end: 20061222
  4. VICODIN [Concomitant]
  5. SOMA [Concomitant]
  6. DOXEPIN HCL [Concomitant]
  7. NASONEX [Concomitant]
  8. AZITHROMYCIN [Concomitant]
  9. RELPAX [Concomitant]
  10. ZOVIRAX [Concomitant]

REACTIONS (1)
  - BREAST CANCER FEMALE [None]
